FAERS Safety Report 18564372 (Version 1)
Quarter: 2020Q4

REPORT INFORMATION
  Report Type: Spontaneous
  Country: US (occurrence: US)
  Receive Date: 20201201
  Receipt Date: 20201201
  Transmission Date: 20210114
  Serious: Yes (Other)
  Sender: FDA-Public Use
  Company Number: US-BAYER-2020-255419

PATIENT
  Weight: 53 kg

DRUGS (7)
  1. ENEMA [SODIUM CHLORIDE] [Concomitant]
     Dosage: UNK
  2. ALKA-SELTZER ORIGINAL [Suspect]
     Active Substance: ANHYDROUS CITRIC ACID\ASPIRIN\SODIUM BICARBONATE
     Dosage: UNK
     Route: 065
  3. ASPIRIN (PAIN AND FEVER) [Suspect]
     Active Substance: ASPIRIN
     Dosage: UNK
     Route: 065
  4. MIRALAX [Suspect]
     Active Substance: POLYETHYLENE GLYCOL 3350
     Indication: GASTROINTESTINAL DISORDER
     Dosage: 17 G IN 4 OZ OF WATER AND 2-3 OZ OF JUICE DOSE
     Route: 048
  5. MILK OF MAGNESIA ORIGINAL [Suspect]
     Active Substance: MAGNESIUM HYDROXIDE
     Dosage: UNK
     Route: 065
  6. EXLAX [PHENOLPHTHALEIN] [Suspect]
     Active Substance: PHENOLPHTHALEIN
     Dosage: UNK
  7. PEPTO-BISMOL [Suspect]
     Active Substance: BISMUTH SUBSALICYLATE
     Dosage: UNK

REACTIONS (9)
  - Palpitations [Unknown]
  - Haematochezia [Unknown]
  - Constipation [Unknown]
  - Dyspnoea [Unknown]
  - Urticaria [Unknown]
  - Nausea [Unknown]
  - Drug hypersensitivity [Unknown]
  - Illness [Unknown]
  - Incorrect dose administered [None]

NARRATIVE: CASE EVENT DATE: 20201117
